FAERS Safety Report 18126501 (Version 1)
Quarter: 2020Q3

REPORT INFORMATION
  Report Type: Spontaneous
  Country: GB (occurrence: GB)
  Receive Date: 20200808
  Receipt Date: 20200808
  Transmission Date: 20201103
  Serious: Yes (Other)
  Sender: FDA-Public Use
  Company Number: GB-ASCEND THERAPEUTICS US, LLC-2088320

PATIENT
  Age: 52 Year
  Sex: Female
  Weight: 75 kg

DRUGS (3)
  1. OESTRODOSE (ESTRADIOL) [Suspect]
     Active Substance: ESTRADIOL
     Route: 003
     Dates: start: 20191008
  2. ESTROGEL [Suspect]
     Active Substance: ESTRADIOL
  3. ESTROGEL [Suspect]
     Active Substance: ESTRADIOL
     Indication: MENOPAUSAL SYMPTOMS
     Route: 003
     Dates: start: 20191008

REACTIONS (5)
  - Agitation [Not Recovered/Not Resolved]
  - Night sweats [Not Recovered/Not Resolved]
  - Insomnia [Not Recovered/Not Resolved]
  - Drug ineffective [Unknown]
  - Product substitution issue [Unknown]

NARRATIVE: CASE EVENT DATE: 20200613
